FAERS Safety Report 16263577 (Version 2)
Quarter: 2020Q1

REPORT INFORMATION
  Report Type: Report from Study
  Country: JP (occurrence: JP)
  Receive Date: 20190502
  Receipt Date: 20200203
  Transmission Date: 20200409
  Serious: Yes (Other)
  Sender: FDA-Public Use
  Company Number: JP-ASTELLAS-2019JP006647

PATIENT
  Age: 46 Year
  Sex: Male

DRUGS (13)
  1. REBAMIPIDE [Concomitant]
     Active Substance: REBAMIPIDE
     Indication: PROPHYLAXIS
     Route: 048
  2. TOARASET [Concomitant]
     Active Substance: ACETAMINOPHEN\TRAMADOL HYDROCHLORIDE
     Indication: BACK PAIN
     Dosage: 4 TABLET/DAY, UNKNOWN FREQ.
     Route: 048
     Dates: start: 20190401
  3. NICORANDIL [Concomitant]
     Active Substance: NICORANDIL
     Indication: PRINZMETAL ANGINA
     Dosage: 10 MG/DAY, UNKNOWN FREQ.
     Route: 048
  4. DAIPHEN [Concomitant]
     Active Substance: SULFAMETHOXAZOLE\TRIMETHOPRIM
     Indication: PROPHYLAXIS
     Dosage: 1 TABLET/DAY, UNKNOWN FREQ.
     Route: 048
  5. ZOLPIDEM TARTRATE. [Concomitant]
     Active Substance: ZOLPIDEM TARTRATE
     Indication: INSOMNIA
     Dosage: 5 MG/DAY, UNKNOWN FREQ.
     Route: 048
  6. BORRAZA-G [Concomitant]
     Active Substance: LIDOCAINE\TRIBENOSIDE
     Indication: HAEMORRHOIDS
     Dosage: 2.4 G/DAY, UNKNOWN FREQ.
     Route: 061
  7. LOXOPROFEN [Concomitant]
     Active Substance: LOXOPROFEN
     Indication: BACK PAIN
     Dosage: 60 MG/DAY, UNKNOWN FREQ.
     Route: 048
  8. ASP2215 [Suspect]
     Active Substance: GILTERITINIB
     Indication: ACUTE MYELOID LEUKAEMIA REFRACTORY
     Route: 048
     Dates: start: 20190401
  9. BENIDIPINE HYDROCHLORIDE [Concomitant]
     Active Substance: BENIDIPINE HYDROCHLORIDE
     Indication: PRINZMETAL ANGINA
     Dosage: 4 MG/DAY, UNKNOWN FREQ.
     Route: 048
  10. CALONAL [Concomitant]
     Active Substance: ACETAMINOPHEN
     Indication: BACK PAIN
     Dosage: 400 MG/DAY, UNKNOWN FREQ.
     Route: 048
  11. SENNOSIDE A [Concomitant]
     Active Substance: SENNOSIDE A
     Indication: CONSTIPATION
     Route: 048
  12. FLUCONAZOLE. [Concomitant]
     Active Substance: FLUCONAZOLE
     Indication: PROPHYLAXIS
     Dosage: 200 MG/DAY, UNKNOWN FREQ.
     Route: 048
  13. TAKECAB [Concomitant]
     Active Substance: VONOPRAZAN FUMURATE
     Indication: PROPHYLAXIS
     Dosage: 20 MG/DAY, UNKNOWN FREQ.
     Route: 048

REACTIONS (3)
  - Hepatic function abnormal [Not Recovered/Not Resolved]
  - Agranulocytosis [Not Recovered/Not Resolved]
  - White blood cell count decreased [Not Recovered/Not Resolved]

NARRATIVE: CASE EVENT DATE: 20190405
